FAERS Safety Report 6528677-5 (Version None)
Quarter: 2010Q1

REPORT INFORMATION
  Report Type: 
  Country: None (occurrence: None)
  Receive Date: 20100106
  Receipt Date: 20091230
  Transmission Date: 20100710
  Serious: Yes (Hospitalization)
  Sender: FDA-Public Use
  Company Number: GB-WYE-G05242009

PATIENT
  Age: 45 Year
  Sex: Male

DRUGS (1)
  1. EFFEXOR [Suspect]
     Route: 048

REACTIONS (1)
  - EPILEPSY [None]
